FAERS Safety Report 17729200 (Version 3)
Quarter: 2020Q2

REPORT INFORMATION
  Report Type: Report from Study
  Country: IT (occurrence: IT)
  Receive Date: 20200430
  Receipt Date: 20200530
  Transmission Date: 20200714
  Serious: Yes (Death, Hospitalization, Other)
  Sender: FDA-Public Use
  Company Number: NVSC2020IT117561

PATIENT
  Age: 84 Year
  Sex: Male

DRUGS (2)
  1. DELTACORTENE [Suspect]
     Active Substance: PREDNISONE
     Indication: CHRONIC SPONTANEOUS URTICARIA
     Dosage: 2.5 MG, QD
     Route: 065
     Dates: start: 20161125
  2. REVOLADE [Suspect]
     Active Substance: ELTROMBOPAG
     Indication: CHRONIC SPONTANEOUS URTICARIA
     Dosage: 75 MG, QD
     Route: 065
     Dates: start: 20161125

REACTIONS (6)
  - Cardiopulmonary failure [Fatal]
  - Pulmonary embolism [Unknown]
  - Pleural effusion [Unknown]
  - Cardiac arrest [Fatal]
  - Pneumonia [Unknown]
  - Respiratory failure [Fatal]

NARRATIVE: CASE EVENT DATE: 20200411
